FAERS Safety Report 8290091-2 (Version None)
Quarter: 2012Q2

REPORT INFORMATION
  Report Type: 
  Country: None (occurrence: None)
  Receive Date: 20120417
  Receipt Date: 20120412
  Transmission Date: 20120825
  Serious: No
  Sender: FDA-Public Use
  Company Number: US-PFIZER INC-2012091959

PATIENT
  Sex: Female
  Weight: 58.05 kg

DRUGS (6)
  1. LEVOTHYROXINE SODIUM [Concomitant]
     Indication: THYROID DISORDER
     Dosage: UNK
  2. PREVACID [Concomitant]
     Indication: GASTROOESOPHAGEAL REFLUX DISEASE
  3. NEURONTIN [Suspect]
     Indication: NERVE INJURY
  4. PREVACID [Concomitant]
     Indication: DYSPEPSIA
     Dosage: UNK
  5. NEURONTIN [Suspect]
     Indication: PAIN
  6. NEURONTIN [Suspect]
     Indication: MULTIPLE SCLEROSIS
     Dosage: 300 MG, 3X/DAY
     Route: 048

REACTIONS (3)
  - PAIN [None]
  - DEPRESSION [None]
  - ANXIETY [None]
